FAERS Safety Report 9391867 (Version 3)
Quarter: 2013Q3

REPORT INFORMATION
  Report Type: Report from Study
  Country: IT (occurrence: IT)
  Receive Date: 20130709
  Receipt Date: 20130815
  Transmission Date: 20140515
  Serious: Yes (Death)
  Sender: FDA-Public Use
  Company Number: IT-CELGENEUS-083-22393-13070137

PATIENT
  Age: 49 Year
  Sex: Male
  Weight: 62 kg

DRUGS (7)
  1. ISTODAX [Suspect]
     Indication: T-CELL LYMPHOMA
     Route: 041
     Dates: start: 20130427, end: 20130503
  2. PREDNISOLONE [Concomitant]
     Indication: T-CELL LYMPHOMA
     Dosage: 60 MILLIGRAM
     Route: 065
     Dates: start: 20130420, end: 20130504
  3. GANCICLOVIR [Concomitant]
     Indication: CYTOMEGALOVIRUS INFECTION
     Dosage: 400 MILLIGRAM
     Route: 041
     Dates: start: 20130415, end: 20130504
  4. CASPOFUNGIN [Concomitant]
     Indication: FEBRILE NEUTROPENIA
     Dosage: 50 MILLIGRAM
     Route: 041
     Dates: start: 20130425, end: 20130504
  5. METRONIDAZOLE [Concomitant]
     Indication: ENTERITIS
     Dosage: 2000 MILLIGRAM
     Route: 065
     Dates: start: 20130427, end: 20130504
  6. CIPROFLOXACINE [Concomitant]
     Indication: PNEUMONITIS
     Dosage: 400 MILLIGRAM
     Route: 065
     Dates: start: 20130502, end: 20130504
  7. PALONOSETRON [Concomitant]
     Indication: PROPHYLAXIS OF NAUSEA AND VOMITING
     Dosage: .25 MILLIGRAM
     Route: 065
     Dates: start: 20130503, end: 20130503

REACTIONS (1)
  - Haemorrhage intracranial [Fatal]
